FAERS Safety Report 7431801-3 (Version None)
Quarter: 2011Q2

REPORT INFORMATION
  Report Type: 
  Country: None (occurrence: None)
  Receive Date: 20110422
  Receipt Date: 20110413
  Transmission Date: 20111010
  Serious: Yes (Hospitalization, Other)
  Sender: FDA-Public Use
  Company Number: PHHY2011US29510

PATIENT
  Sex: Male
  Weight: 69 kg

DRUGS (2)
  1. EXJADE [Suspect]
     Indication: MYELODYSPLASTIC SYNDROME
     Dosage: 1250 MG, DAILY
     Route: 048
     Dates: start: 20110311, end: 20110329
  2. EXJADE [Suspect]
     Indication: CHELATION THERAPY

REACTIONS (7)
  - SWELLING [None]
  - DYSPNOEA [None]
  - SPEECH DISORDER [None]
  - OEDEMA PERIPHERAL [None]
  - RENAL DISORDER [None]
  - GAIT DISTURBANCE [None]
  - SWELLING FACE [None]
